FAERS Safety Report 8577075-1 (Version None)
Quarter: 2012Q3

REPORT INFORMATION
  Report Type: 
  Country: None (occurrence: None)
  Receive Date: 20120807
  Receipt Date: 20120725
  Transmission Date: 20120928
  Serious: No
  Sender: FDA-Public Use
  Company Number: US-ASTRAZENECA-2012SE52593

PATIENT
  Age: 90 Year
  Sex: Female
  Weight: 52.2 kg

DRUGS (4)
  1. NEXIUM [Suspect]
     Route: 048
     Dates: start: 20110101, end: 20120101
  2. NEXIUM [Suspect]
     Route: 048
     Dates: start: 20120701
  3. PROBIOTICS [Concomitant]
     Indication: FUNCTIONAL GASTROINTESTINAL DISORDER
  4. NEXIUM [Suspect]
     Indication: ABDOMINAL DISCOMFORT
     Route: 048
     Dates: start: 20110101, end: 20110101

REACTIONS (2)
  - OFF LABEL USE [None]
  - ABDOMINAL PAIN UPPER [None]
